FAERS Safety Report 5431387-9 (Version None)
Quarter: 2007Q3

REPORT INFORMATION
  Report Type: 
  Country: None (occurrence: None)
  Receive Date: 20070830
  Receipt Date: 20070604
  Transmission Date: 20080115
  Serious: No
  Sender: FDA-Public Use
  Company Number: A0651753A

PATIENT
  Age: 30 Year
  Sex: Female

DRUGS (3)
  1. WELLBUTRIN XL [Suspect]
     Indication: DEPRESSION
     Dosage: 150MG PER DAY
     Route: 048
  2. WELLBUTRIN XL [Suspect]
     Indication: DRUG USE FOR UNKNOWN INDICATION
     Dates: start: 20070503, end: 20070507
  3. ETHINYL ESTRADIOL TAB [Concomitant]
     Indication: CONTRACEPTION
     Route: 048
     Dates: start: 20070503

REACTIONS (2)
  - CRYING [None]
  - PHARMACEUTICAL PRODUCT COMPLAINT [None]
